FAERS Safety Report 13336164 (Version 2)
Quarter: 2017Q2

REPORT INFORMATION
  Report Type: Report from Study
  Country: IT (occurrence: IT)
  Receive Date: 20170314
  Receipt Date: 20170414
  Transmission Date: 20170830
  Serious: Yes (Other)
  Sender: FDA-Public Use
  Company Number: IT-TEVA-748449ACC

PATIENT
  Age: 1 Year
  Sex: Male

DRUGS (1)
  1. IBUPROFEN. [Suspect]
     Active Substance: IBUPROFEN
     Indication: GINGIVITIS
     Dosage: 100 MILLIGRAM DAILY;
     Route: 065

REACTIONS (2)
  - Hypothermia [Recovered/Resolved]
  - Diarrhoea [Unknown]
